FAERS Safety Report 10356568 (Version 1)
Quarter: 2014Q3

REPORT INFORMATION
  Report Type: Spontaneous
  Country: US (occurrence: None)
  Receive Date: 20140730
  Receipt Date: 20140730
  Transmission Date: 20150326
  Serious: Yes (Hospitalization)
  Sender: FDA-Public Use
  Company Number: None

PATIENT
  Age: 64 Year
  Sex: Male
  Weight: 98.6 kg

DRUGS (1)
  1. 5-FLUOROURACIL (5-FU) [Suspect]
     Active Substance: FLUOROURACIL
     Dosage: TREATMENT WAS DELIVERED BY CONTINOUS INFUSION FROM 3/10 THRU 4/19/2004, CONCURRENTLY WITH XRT?20429 MG TOTAL DOSE ADMINISTERED

REACTIONS (5)
  - Bacterial test positive [None]
  - Pyrexia [None]
  - Enterococcus test positive [None]
  - Radiation proctitis [None]
  - Diarrhoea [None]

NARRATIVE: CASE EVENT DATE: 20140603
